FAERS Safety Report 18184115 (Version 5)
Quarter: 2020Q4

REPORT INFORMATION
  Report Type: Spontaneous
  Country: JP (occurrence: JP)
  Receive Date: 20200823
  Receipt Date: 20201124
  Transmission Date: 20210113
  Serious: Yes (Hospitalization, Other)
  Sender: FDA-Public Use
  Company Number: JP-BEH-2020121083

PATIENT
  Age: 86 Year
  Sex: Female
  Weight: 48.9 kg

DRUGS (17)
  1. ALBUMINAR-25 [Suspect]
     Active Substance: ALBUMIN HUMAN
     Indication: BLOOD ALBUMIN DECREASED
     Dosage: 100 MILLILITER (2 VIALS), TOT
     Route: 041
     Dates: start: 20200804, end: 20200804
  2. ALBUMINAR-25 [Suspect]
     Active Substance: ALBUMIN HUMAN
     Indication: HEPATIC CIRRHOSIS
  3. LASIX [Concomitant]
     Active Substance: FUROSEMIDE
     Route: 041
  4. EDIROL [Concomitant]
     Active Substance: ELDECALCITOL
     Dosage: 1 CAPSULE, QD AFTER BREAKFAST
     Route: 048
  5. LOXONIN [Concomitant]
     Active Substance: LOXOPROFEN SODIUM
     Indication: ANTIPYRESIS
     Dosage: UNK
     Route: 048
     Dates: start: 20200804, end: 20200804
  6. LASIX [Concomitant]
     Active Substance: FUROSEMIDE
     Dosage: 20 MILLIGRAM
  7. ALBUMINAR-25 [Suspect]
     Active Substance: ALBUMIN HUMAN
     Indication: OEDEMA
  8. ALBUMINAR-25 [Suspect]
     Active Substance: ALBUMIN HUMAN
     Indication: ASCITES
  9. SEISHOKU [Concomitant]
     Active Substance: SODIUM CHLORIDE
     Route: 041
  10. BONALON [Concomitant]
     Active Substance: ALENDRONATE SODIUM
     Dosage: 1T, JELLY, QW AT THE TIME OF AWAKENING EVERY TUESDAY
     Route: 048
  11. LIVACT [ISOLEUCINE;LEUCINE;VALINE] [Concomitant]
     Dosage: 4.15  GRANULES, TID AFTER MEALS
     Route: 048
  12. URSO [Concomitant]
     Active Substance: URSODIOL
     Dosage: 100 MILLIGRAM, TID AFTER MEALS
     Route: 048
  13. TRICHLORMETHIAZIDE [Concomitant]
     Active Substance: TRICHLORMETHIAZIDE
     Dosage: .5 TABLET, QD AFTER BREAKFAST
     Route: 048
  14. ALBUMINAR-25 [Suspect]
     Active Substance: ALBUMIN HUMAN
     Indication: HYPOALBUMINAEMIA
     Dosage: 25 GRAM (2 VIALS); DURATION 2 HRS
     Route: 041
     Dates: start: 20200804, end: 20200804
  15. SENNOSIDE [SENNOSIDE A+B] [Concomitant]
     Active Substance: SENNOSIDES A AND B
     Dosage: 2 TABLETS , HS
     Route: 048
  16. SPIRONOLACTONE. [Concomitant]
     Active Substance: SPIRONOLACTONE
     Dosage: 1 TABLET, QD AFTER BREAKFAST
     Route: 048
     Dates: start: 20200804
  17. FUROSEMIDE. [Concomitant]
     Active Substance: FUROSEMIDE
     Dosage: 1 TABLET, QD AFTER BREAKFAST
     Route: 048
     Dates: start: 20200804

REACTIONS (6)
  - Staphylococcal infection [Recovered/Resolved]
  - Tremor [Recovered/Resolved]
  - Suspected transmission of an infectious agent via product [Recovered/Resolved]
  - Chills [Recovered/Resolved]
  - Pyrexia [Recovered/Resolved]
  - Bacterial infection [Recovered/Resolved]

NARRATIVE: CASE EVENT DATE: 20200804
